FAERS Safety Report 8460549-1 (Version None)
Quarter: 2012Q2

REPORT INFORMATION
  Report Type: 
  Country: None (occurrence: None)
  Receive Date: 20120622
  Receipt Date: 20120613
  Transmission Date: 20120825
  Serious: Yes (Hospitalization)
  Sender: FDA-Public Use
  Company Number: DE-ASTRAZENECA-2012SE39970

PATIENT
  Sex: Male

DRUGS (15)
  1. SEROQUEL XR [Suspect]
     Route: 048
     Dates: start: 20120202, end: 20120227
  2. ANAFRANIL [Suspect]
     Route: 048
     Dates: start: 20120204, end: 20120207
  3. CLONAZEPAM [Concomitant]
     Route: 048
     Dates: start: 20120209, end: 20120213
  4. ANAFRANIL [Suspect]
     Route: 048
     Dates: start: 20120201, end: 20120201
  5. CLONAZEPAM [Concomitant]
     Route: 048
     Dates: start: 20120201, end: 20120208
  6. ALLOPURINOL [Concomitant]
     Route: 048
     Dates: start: 20100101
  7. SEROQUEL XR [Suspect]
     Route: 048
     Dates: start: 20111101, end: 20120201
  8. ANAFRANIL [Suspect]
     Route: 048
     Dates: start: 20120202, end: 20120203
  9. LITHIUM CARBONATE [Suspect]
     Route: 048
     Dates: start: 20111101, end: 20120220
  10. SEROQUEL XR [Suspect]
     Route: 048
     Dates: start: 20120228
  11. CLONAZEPAM [Concomitant]
     Route: 048
     Dates: start: 20120214, end: 20120221
  12. MIRTAZAPINE [Suspect]
     Route: 048
     Dates: start: 20111101, end: 20120223
  13. LITHIUM CARBONATE [Suspect]
     Route: 048
     Dates: start: 20120223
  14. ANAFRANIL [Suspect]
     Route: 048
     Dates: start: 20120208, end: 20120221
  15. ANAFRANIL [Suspect]
     Route: 048
     Dates: start: 20120222, end: 20120224

REACTIONS (1)
  - DELIRIUM [None]
